FAERS Safety Report 10527021 (Version 2)
Quarter: 2014Q4

REPORT INFORMATION
  Report Type: Report from Study
  Country: US (occurrence: US)
  Receive Date: 20141020
  Receipt Date: 20141020
  Transmission Date: 20150528
  Serious: Yes (Hospitalization)
  Sender: FDA-Public Use
  Company Number: US-ROCHE-1462768

PATIENT
  Sex: Male

DRUGS (1)
  1. XELODA [Suspect]
     Active Substance: CAPECITABINE
     Indication: RECTAL CANCER
     Dosage: 3 TABLETS TWICE A DAY/ 14 ON, 7 DAYS OFF
     Route: 048

REACTIONS (3)
  - Bladder disorder [Unknown]
  - Throat tightness [Recovered/Resolved]
  - Dyspnoea [Recovering/Resolving]
